FAERS Safety Report 9215234 (Version 2)
Quarter: 2013Q2

REPORT INFORMATION
  Report Type: Spontaneous
  Country: US (occurrence: US)
  Receive Date: 20130405
  Receipt Date: 20130416
  Transmission Date: 20140414
  Serious: Yes (Hospitalization, Other)
  Sender: FDA-Public Use
  Company Number: US-BAXTER-2013BAX012210

PATIENT
  Age: 38 Year
  Sex: Female

DRUGS (2)
  1. DIANEAL PD2 [Suspect]
     Indication: PERITONEAL DIALYSIS
     Route: 033
     Dates: start: 200909
  2. DIANEAL PD2 [Suspect]
     Indication: PERITONEAL DIALYSIS
     Route: 033
     Dates: start: 200909

REACTIONS (5)
  - Cardiopulmonary failure [Recovering/Resolving]
  - Anaemia [Recovered/Resolved]
  - Leukopenia [Recovered/Resolved]
  - Anaemia of chronic disease [Recovered/Resolved]
  - Fluid overload [Recovering/Resolving]
